FAERS Safety Report 10479153 (Version 2)
Quarter: 2014Q3

REPORT INFORMATION
  Report Type: Spontaneous
  Country: US (occurrence: US)
  Receive Date: 20140926
  Receipt Date: 20140926
  Transmission Date: 20150326
  Serious: Yes (Other)
  Sender: FDA-Public Use
  Company Number: US-AMGEN-USASP2014069353

PATIENT
  Age: 57 Year
  Sex: Female

DRUGS (5)
  1. PROLIA [Suspect]
     Active Substance: DENOSUMAB
     Indication: OSTEOPENIA
     Dosage: UNK
     Route: 065
     Dates: start: 201402
  2. SYNTHROID [Concomitant]
     Active Substance: LEVOTHYROXINE SODIUM
     Dosage: 75 MUG, UNK
     Dates: start: 2014
  3. OMEPRAZOLE                         /00661202/ [Concomitant]
  4. CALCIUM [Concomitant]
     Active Substance: CALCIUM
     Dosage: 1200 MG, QD
  5. ATENOLOL. [Concomitant]
     Active Substance: ATENOLOL

REACTIONS (9)
  - Scleroderma [Unknown]
  - Injection site pain [Unknown]
  - Injection site discomfort [Unknown]
  - Back pain [Unknown]
  - Gastrointestinal disorder [Unknown]
  - Dizziness [Unknown]
  - Blood glucose decreased [Unknown]
  - Vitamin D decreased [Unknown]
  - Weight abnormal [Unknown]

NARRATIVE: CASE EVENT DATE: 2014
